FAERS Safety Report 25938310 (Version 1)
Quarter: 2025Q4

REPORT INFORMATION
  Report Type: Spontaneous
  Country: US (occurrence: US)
  Receive Date: 20251018
  Receipt Date: 20251018
  Transmission Date: 20260118
  Serious: Yes (Hospitalization)
  Sender: MERCK SHARP & DOHME LLC
  Company Number: US-009507513-2337834

PATIENT
  Age: 78 Year
  Sex: Male

DRUGS (3)
  1. PEMBROLIZUMAB [Suspect]
     Active Substance: PEMBROLIZUMAB
     Indication: Bladder cancer
     Dosage: ON WEEKS 0, 6, 12, 23, AND 26
     Dates: start: 2022
  2. GEMCITABINE [Suspect]
     Active Substance: GEMCITABINE
     Indication: Bladder cancer
     Route: 043
  3. CABAZITAXEL [Suspect]
     Active Substance: CABAZITAXEL
     Indication: Bladder cancer
     Route: 043

REACTIONS (1)
  - Eosinophilic fasciitis [Recovering/Resolving]
